FAERS Safety Report 4903301-3 (Version None)
Quarter: 2006Q1

REPORT INFORMATION
  Report Type: 
  Country: None (occurrence: None)
  Receive Date: 20060208
  Receipt Date: 20060127
  Transmission Date: 20060701
  Serious: Yes (Other)
  Sender: FDA-Public Use
  Company Number: FR-SANOFI-SYNTHELABO-A02200600265

PATIENT
  Age: 27 Year
  Sex: Female

DRUGS (3)
  1. EXACYL [Suspect]
     Indication: ANGIONEUROTIC OEDEMA
     Dosage: UNK
     Route: 048
     Dates: start: 20051125
  2. DANATROL [Suspect]
     Indication: ANGIONEUROTIC OEDEMA
     Route: 048
     Dates: end: 20051125
  3. MEDICINALPRODUCT NOT SPECIFIED BY SENDER [Concomitant]

REACTIONS (2)
  - DRUG EXPOSURE DURING PREGNANCY [None]
  - INTRA-UTERINE DEATH [None]
